FAERS Safety Report 7284357-2 (Version None)
Quarter: 2011Q1

REPORT INFORMATION
  Report Type: 
  Country: None (occurrence: None)
  Receive Date: 20110209
  Receipt Date: 20110126
  Transmission Date: 20110831
  Serious: Yes (Disabling, Other)
  Sender: FDA-Public Use
  Company Number: US-JNJFOC-20041006782

PATIENT
  Sex: Male
  Weight: 101.15 kg

DRUGS (20)
  1. RISPERDAL [Suspect]
     Route: 048
  2. PAXIL [Concomitant]
  3. CELEXA [Concomitant]
  4. RISPERDAL [Suspect]
     Dosage: 0.5 MG DAILY X 4, THEN 1 MG DAILY X 4, THEN 1.5 MG DAILY X 4
     Route: 048
  5. RISPERDAL [Suspect]
     Dosage: 1/2 TO 1 TABLET HS
     Route: 048
  6. XENICAL [Concomitant]
     Indication: WEIGHT INCREASED
  7. RISPERDAL [Suspect]
     Dosage: AT BEDTIME
     Route: 048
  8. AMBIEN [Concomitant]
  9. ADDERALL 10 [Concomitant]
  10. PEPCID [Concomitant]
  11. NEXIUM [Concomitant]
  12. RISPERDAL [Suspect]
     Indication: BIPOLAR DISORDER
     Route: 048
  13. DICYCLOMINE [Suspect]
     Indication: PRODUCT USED FOR UNKNOWN INDICATION
  14. ADDERALL 10 [Concomitant]
  15. PHENTERMINE HYDROCHLORIDE [Concomitant]
  16. PAXIL [Concomitant]
     Dosage: ^REDUCE^
  17. RISPERDAL [Suspect]
     Route: 048
  18. RISPERDAL [Suspect]
     Dosage: AT NIGHT
     Route: 048
  19. ZYPREXA [Concomitant]
     Indication: PRODUCT USED FOR UNKNOWN INDICATION
  20. ZOLOFT [Concomitant]

REACTIONS (17)
  - TARDIVE DYSKINESIA [None]
  - ANXIETY [None]
  - EXTRAPYRAMIDAL DISORDER [None]
  - ABDOMINAL PAIN [None]
  - DIZZINESS [None]
  - CHOLELITHIASIS [None]
  - DECREASED APPETITE [None]
  - LETHARGY [None]
  - HYPERHIDROSIS [None]
  - RENAL CYST [None]
  - DYSTONIA [None]
  - NAUSEA [None]
  - GALLBLADDER POLYP [None]
  - ABDOMINAL DISTENSION [None]
  - DEPRESSION [None]
  - WEIGHT INCREASED [None]
  - HEPATIC STEATOSIS [None]
